FAERS Safety Report 24647115 (Version 2)
Quarter: 2024Q4

REPORT INFORMATION
  Report Type: Spontaneous
  Country: DE (occurrence: DE)
  Receive Date: 20241121
  Receipt Date: 20241129
  Transmission Date: 20250115
  Serious: Yes (Other)
  Sender: EXELIXIS
  Company Number: DE-BRISTOL-MYERS SQUIBB COMPANY-2024-178396

PATIENT
  Age: 60 Year
  Sex: Male

DRUGS (4)
  1. CABOMETYX [Suspect]
     Active Substance: CABOZANTINIB S-MALATE
     Indication: Renal cell carcinoma
     Dosage: 40 MG
     Dates: start: 202307
  2. CABOMETYX [Suspect]
     Active Substance: CABOZANTINIB S-MALATE
     Indication: Transitional cell carcinoma
  3. NIVOLUMAB [Suspect]
     Active Substance: NIVOLUMAB
     Indication: Renal cell carcinoma
     Dosage: 240 MG
     Dates: start: 202307
  4. NIVOLUMAB [Suspect]
     Active Substance: NIVOLUMAB
     Indication: Transitional cell carcinoma

REACTIONS (5)
  - Device related thrombosis [Unknown]
  - Deep vein thrombosis [Unknown]
  - Sensitive skin [Unknown]
  - Diarrhoea [Unknown]
  - Dry mouth [Unknown]

NARRATIVE: CASE EVENT DATE: 20231001
